FAERS Safety Report 4289475-9 (Version None)
Quarter: 2004Q1

REPORT INFORMATION
  Report Type: 
  Country: None (occurrence: None)
  Receive Date: 20040210
  Receipt Date: 20040203
  Transmission Date: 20041129
  Serious: Yes (Hospitalization)
  Sender: FDA-Public Use
  Company Number: 200410448FR

PATIENT
  Age: 82 Year
  Sex: Female
  Weight: 72 kg

DRUGS (4)
  1. LASILIX 40 MG [Suspect]
     Route: 048
     Dates: end: 20010608
  2. LOPRIL [Concomitant]
     Route: 048
     Dates: start: 20010601, end: 20010602
  3. AMLOR [Concomitant]
     Route: 048
     Dates: start: 20010603, end: 20010617
  4. FOZITEC [Concomitant]
     Route: 048
     Dates: start: 20010603, end: 20010603

REACTIONS (2)
  - HYPERKALAEMIA [None]
  - RENAL FAILURE ACUTE [None]
